FAERS Safety Report 9277360 (Version 1)
Quarter: 2013Q2

REPORT INFORMATION
  Report Type: Spontaneous
  Country: US (occurrence: None)
  Receive Date: 20130503
  Receipt Date: 20130503
  Transmission Date: 20140414
  Serious: Yes (Other)
  Sender: FDA-Public Use
  Company Number: None

PATIENT
  Sex: Female
  Weight: 90.72 kg

DRUGS (1)
  1. LINZESS [Suspect]
     Indication: IRRITABLE BOWEL SYNDROME
     Dosage: 1 PER DAY
     Route: 048
     Dates: start: 20130328, end: 20130411

REACTIONS (3)
  - Diarrhoea [None]
  - Abdominal pain [None]
  - Nausea [None]
